FAERS Safety Report 6079979-0 (Version None)
Quarter: 2009Q1

REPORT INFORMATION
  Report Type: 
  Country: None (occurrence: None)
  Receive Date: 20090217
  Receipt Date: 20081118
  Transmission Date: 20090719
  Serious: No
  Sender: FDA-Public Use
  Company Number: A0757064A

PATIENT
  Age: 72 Year
  Sex: Female

DRUGS (6)
  1. COREG CR [Suspect]
     Dosage: 40MG PER DAY
     Route: 048
  2. NEXIUM [Concomitant]
  3. ACTOS [Concomitant]
  4. TENEX [Concomitant]
  5. CYCLOBENZAPRINE [Concomitant]
  6. NORVASC [Concomitant]

REACTIONS (1)
  - TINNITUS [None]
